FAERS Safety Report 14779349 (Version 1)
Quarter: 2018Q2

REPORT INFORMATION
  Report Type: Spontaneous
  Country: US (occurrence: US)
  Receive Date: 20180412
  Receipt Date: 20180412
  Transmission Date: 20180711
  Serious: No
  Sender: FDA-Public Use
  Company Number: None

PATIENT
  Age: 60 Year
  Sex: Female

DRUGS (1)
  1. ESTRADIOL TRANSDERMAL SYSTEM [Suspect]
     Active Substance: ESTRADIOL
     Route: 062
     Dates: start: 20171214, end: 20180401

REACTIONS (3)
  - Application site reaction [None]
  - Product quality issue [None]
  - Application site rash [None]

NARRATIVE: CASE EVENT DATE: 20171214
